FAERS Safety Report 15952492 (Version 7)
Quarter: 2019Q3

REPORT INFORMATION
  Report Type: Spontaneous
  Country: US (occurrence: US)
  Receive Date: 20190212
  Receipt Date: 20190930
  Transmission Date: 20191004
  Serious: No
  Sender: FDA-Public Use
  Company Number: US-PFIZER INC-2019055634

PATIENT
  Age: 53 Year
  Sex: Female
  Weight: 83 kg

DRUGS (2)
  1. LYRICA [Suspect]
     Active Substance: PREGABALIN
     Indication: NEURALGIA
     Dosage: 75 MG, 3X/DAY
     Route: 048
     Dates: start: 2011
  2. LYRICA [Suspect]
     Active Substance: PREGABALIN
     Indication: NERVE INJURY
     Dosage: 75 MG, 3X/DAY
     Route: 048
     Dates: start: 2010, end: 20190131

REACTIONS (6)
  - Restlessness [Unknown]
  - Withdrawal syndrome [Unknown]
  - Malaise [Unknown]
  - Dyskinesia [Unknown]
  - Pain [Not Recovered/Not Resolved]
  - Insomnia [Unknown]

NARRATIVE: CASE EVENT DATE: 20190131
